FAERS Safety Report 7040088-5 (Version None)
Quarter: 2010Q4

REPORT INFORMATION
  Report Type: 
  Country: None (occurrence: None)
  Receive Date: 20101012
  Receipt Date: 20100929
  Transmission Date: 20110411
  Serious: Yes (Hospitalization, Other)
  Sender: FDA-Public Use
  Company Number: PHHY2010US65137

PATIENT
  Age: 62 Year
  Sex: Female

DRUGS (6)
  1. ZOMETA [Suspect]
     Dosage: 4 MG, EVERY 2-3 WEEKS
     Route: 042
  2. ZOMETA [Suspect]
     Dosage: 4 MG EVERY 4 WEEKS
  3. REVLIMID [Suspect]
     Dosage: 25 MG DAILY
     Route: 048
  4. REVLIMID [Suspect]
     Dosage: 15 MG/DAY
     Route: 048
  5. VELCADE [Concomitant]
     Dosage: 1.3 MG/M2
     Route: 042
  6. DEXAMETHASONE [Concomitant]
     Dosage: 40 MG ORALLY
     Route: 048

REACTIONS (11)
  - BACK PAIN [None]
  - BLOOD POTASSIUM DECREASED [None]
  - DECREASED APPETITE [None]
  - DIARRHOEA [None]
  - FATIGUE [None]
  - HAEMATOCRIT DECREASED [None]
  - NEUROPATHY PERIPHERAL [None]
  - OLIGURIA [None]
  - RHINORRHOEA [None]
  - TUBULOINTERSTITIAL NEPHRITIS [None]
  - VITILIGO [None]
